FAERS Safety Report 18417650 (Version 1)
Quarter: 2020Q4

REPORT INFORMATION
  Report Type: Spontaneous
  Country: US (occurrence: US)
  Receive Date: 20201022
  Receipt Date: 20201022
  Transmission Date: 20210114
  Serious: No
  Sender: FDA-Public Use
  Company Number: US-SEATTLE GENETICS-2020SGN03640

PATIENT
  Sex: Female

DRUGS (2)
  1. XELODA [Suspect]
     Active Substance: CAPECITABINE
     Indication: BREAST CANCER FEMALE
     Dosage: 1500 MG, BID
  2. TUKYSA [Suspect]
     Active Substance: TUCATINIB
     Indication: BREAST CANCER FEMALE
     Dosage: UNK, BID
     Route: 048

REACTIONS (11)
  - Fatigue [Unknown]
  - Nausea [Unknown]
  - Unevaluable event [Unknown]
  - Dry skin [Unknown]
  - Acne [Unknown]
  - Urinary tract infection [Unknown]
  - Skin exfoliation [Unknown]
  - Taste disorder [Unknown]
  - Asthenia [Unknown]
  - Gastric dilatation [Unknown]
  - Mobility decreased [Unknown]
